FAERS Safety Report 6102362-6 (Version None)
Quarter: 2009Q1

REPORT INFORMATION
  Report Type: 
  Country: None (occurrence: None)
  Receive Date: 20090304
  Receipt Date: 20081211
  Transmission Date: 20090719
  Serious: Yes (Other)
  Sender: FDA-Public Use
  Company Number: US-ABBOTT-08P-163-0492464-00

PATIENT
  Sex: Male

DRUGS (2)
  1. VALPROATE SODIUM [Suspect]
     Indication: PETIT MAL EPILEPSY
     Route: 048
  2. VALPROATE SODIUM [Suspect]
     Route: 048

REACTIONS (1)
  - PETIT MAL EPILEPSY [None]
